FAERS Safety Report 6793785-0 (Version None)
Quarter: 2010Q2

REPORT INFORMATION
  Report Type: 
  Country: None (occurrence: None)
  Receive Date: 20100624
  Receipt Date: 20090516
  Transmission Date: 20101027
  Serious: No
  Sender: FDA-Public Use
  Company Number: US-PFIZER INC-2008158905

PATIENT
  Sex: Male
  Weight: 79.819 kg

DRUGS (3)
  1. GEODON [Suspect]
     Indication: BIPOLAR DISORDER
     Dosage: 60 MG, 1X/DAY
     Dates: start: 20080101
  2. WELLBUTRIN [Suspect]
  3. BUPROPION [Suspect]

REACTIONS (3)
  - ALOPECIA [None]
  - INCORRECT DOSE ADMINISTERED [None]
  - RESTLESSNESS [None]
